FAERS Safety Report 10169836 (Version 1)
Quarter: 2014Q2

REPORT INFORMATION
  Report Type: Spontaneous
  Country: US (occurrence: US)
  Receive Date: 20140513
  Receipt Date: 20140513
  Transmission Date: 20141212
  Serious: No
  Sender: FDA-Public Use
  Company Number: US-BAYER-2014-069668

PATIENT
  Age: 47 Year
  Sex: Female
  Weight: 56.69 kg

DRUGS (2)
  1. ALEVE TABLET [Suspect]
     Dosage: UNK
     Route: 048
  2. ALEVE TABLET [Suspect]
     Dosage: 5 DF, ONCE
     Route: 048
     Dates: start: 20140508, end: 20140508

REACTIONS (1)
  - Extra dose administered [None]
